FAERS Safety Report 9512547 (Version 1)
Quarter: 2013Q1

REPORT INFORMATION
  Report Type: Spontaneous
  Country: US (occurrence: None)
  Receive Date: 20130305
  Receipt Date: 20130305
  Transmission Date: 20140127
  Serious: Yes (Other)
  Sender: FDA-Public Use
  Company Number: 163-21880-12101324

PATIENT
  Age: 51 Year
  Sex: Female

DRUGS (2)
  1. REVLIMID (LENALIDOMIDE) (10 MILLIGRAM CAPSULES) [Suspect]
     Indication: THYROID CANCER
     Dosage: 1 IN 1 D
     Route: 048
     Dates: start: 201208
  2. ENOXAPRIN (ENOXAPARIN) (UNKNOWN) [Concomitant]

REACTIONS (1)
  - Drug dose omission [None]
